FAERS Safety Report 5972575-2 (Version None)
Quarter: 2008Q4

REPORT INFORMATION
  Report Type: 
  Country: None (occurrence: None)
  Receive Date: 20081126
  Receipt Date: 20081126
  Transmission Date: 20090506
  Serious: Yes (Hospitalization)
  Sender: FDA-Public Use
  Company Number: None

PATIENT
  Sex: Male
  Weight: 90.3 kg

DRUGS (8)
  1. DASATINIB - BMS CA-180-US [Suspect]
     Indication: GLIOBLASTOMA
     Dosage: 180MG DAYS 1-28 PO DAILY
     Route: 048
     Dates: start: 20080911, end: 20081012
  2. ERLOTINIB GENENTECH [Suspect]
     Indication: GLIOBLASTOMA
     Dosage: 150MG DAYS 1-28 PO DAILY
     Route: 048
     Dates: start: 20080911, end: 20081012
  3. DEXAMETHASONE [Concomitant]
  4. KLOR-CON [Concomitant]
  5. GLYBURIDE [Concomitant]
  6. LASIX [Concomitant]
  7. METFORMIN HCL [Concomitant]
  8. DARVOCET [Concomitant]

REACTIONS (7)
  - DISEASE PROGRESSION [None]
  - HEADACHE [None]
  - HEMIPARESIS [None]
  - ILEUS [None]
  - LETHARGY [None]
  - MENTAL STATUS CHANGES [None]
  - NEUROPATHY PERIPHERAL [None]
